FAERS Safety Report 9210737 (Version 1)
Quarter: 2013Q2

REPORT INFORMATION
  Report Type: Spontaneous
  Country: SE (occurrence: SE)
  Receive Date: 20130404
  Receipt Date: 20130404
  Transmission Date: 20140414
  Serious: Yes (Disabling)
  Sender: FDA-Public Use
  Company Number: SE-ASTRAZENECA-2013SE20169

PATIENT
  Age: 29861 Day
  Sex: Female

DRUGS (1)
  1. NEXIUM [Suspect]
     Route: 048
     Dates: start: 20121115, end: 20121120

REACTIONS (6)
  - Photophobia [Unknown]
  - Vision blurred [Unknown]
  - Diarrhoea [Unknown]
  - Myalgia [Unknown]
  - Hyperhidrosis [Unknown]
  - Dysgeusia [Unknown]
